FAERS Safety Report 8542375-8 (Version None)
Quarter: 2012Q3

REPORT INFORMATION
  Report Type: 
  Country: None (occurrence: None)
  Receive Date: 20120726
  Receipt Date: 20111021
  Transmission Date: 20120928
  Serious: Yes (Life-Threatening, Hospitalization, Other)
  Sender: FDA-Public Use
  Company Number: US-ASTRAZENECA-2011SE63603

PATIENT
  Sex: Male

DRUGS (5)
  1. CLONAZEPAM [Concomitant]
  2. ATENOLOL [Concomitant]
  3. OMEPRAZOLE [Concomitant]
  4. SEROQUEL XR [Suspect]
     Route: 048
  5. DIVALPROEX SODIUM [Concomitant]

REACTIONS (1)
  - DIABETIC COMA [None]
